FAERS Safety Report 4877857-3 (Version None)
Quarter: 2006Q1

REPORT INFORMATION
  Report Type: 
  Country: None (occurrence: None)
  Receive Date: 20060111
  Receipt Date: 20051228
  Transmission Date: 20060701
  Serious: Yes (Other)
  Sender: FDA-Public Use
  Company Number: US-BRISTOL-MYERS SQUIBB COMPANY-13232228

PATIENT
  Age: 37 Year
  Sex: Female

DRUGS (3)
  1. SUSTIVA [Suspect]
     Dosage: TAKEN AT CONCEPTION
     Route: 048
     Dates: start: 20051002, end: 20051002
  2. VIREAD [Suspect]
     Dosage: TAKEN AT CONCEPTION
     Route: 048
     Dates: start: 20051002, end: 20051002
  3. EMTRIVA [Suspect]
     Route: 048
     Dates: start: 20051002, end: 20051002

REACTIONS (2)
  - ABORTION SPONTANEOUS [None]
  - PREGNANCY [None]
